FAERS Safety Report 9661038 (Version 6)
Quarter: 2015Q1

REPORT INFORMATION
  Report Type: Spontaneous
  Country: US (occurrence: US)
  Receive Date: 20131031
  Receipt Date: 20150126
  Transmission Date: 20150721
  Serious: Yes (Hospitalization, Other)
  Sender: FDA-Public Use
  Company Number: US-GLAXOSMITHKLINE-A1047795A

PATIENT
  Age: 59 Year
  Sex: Male
  Weight: 82 kg

DRUGS (4)
  1. FLOLAN [Suspect]
     Active Substance: EPOPROSTENOL SODIUM
     Dosage: 27 NG/KG/MIN CONTINUOUS; CONCENTRATION: 45,000 NG/ML; PUMP RATE: 77 ML/DAY; VIAL STRENGTH: 1.5 MG
     Route: 042
     Dates: start: 20070614
  2. COUMADIN [Concomitant]
     Active Substance: WARFARIN SODIUM
  3. WARFARIN [Concomitant]
     Active Substance: WARFARIN
  4. FLOLAN [Suspect]
     Active Substance: EPOPROSTENOL SODIUM
     Indication: PULMONARY ARTERIAL HYPERTENSION
     Dosage: 27 NG/KG/MIN CONTINUOUSLYCONCENTRATION 45,000 NG/MLVIAL STRENGTH 1.5 MG
     Route: 042
     Dates: start: 20020727

REACTIONS (3)
  - Nephrolithiasis [Unknown]
  - Biopsy kidney [Recovered/Resolved]
  - Medical device complication [Recovered/Resolved]

NARRATIVE: CASE EVENT DATE: 20131028
